FAERS Safety Report 5895955-2 (Version None)
Quarter: 2008Q3

REPORT INFORMATION
  Report Type: 
  Country: None (occurrence: None)
  Receive Date: 20080924
  Receipt Date: 20080924
  Transmission Date: 20090109
  Serious: Yes (Life-Threatening, Hospitalization, Other)
  Sender: FDA-Public Use
  Company Number: JP-B.I. PHARMACEUTICALS,INC./RIDGEFIELD-2007-BP-23530NB

PATIENT
  Sex: Female
  Weight: 31 kg

DRUGS (7)
  1. MICARDIS [Suspect]
     Indication: HYPERTENSION
     Dosage: 20MG
     Route: 048
     Dates: start: 20060724
  2. LASIX [Suspect]
     Indication: PROPHYLAXIS
     Dosage: 20MG
     Route: 048
     Dates: start: 20070116
  3. TANATRIL [Suspect]
     Indication: CARDIAC FAILURE
     Dosage: 1.25MG
     Route: 048
     Dates: start: 20080212, end: 20080301
  4. NORVASC [Concomitant]
     Indication: HYPERTENSION
     Dosage: 5MG
     Route: 048
     Dates: start: 20051208, end: 20070104
  5. ASPIRIN [Concomitant]
     Indication: PROPHYLAXIS
     Dosage: 100MG
     Route: 048
     Dates: start: 20060317
  6. HERBESSER [Concomitant]
     Dosage: 60MG
     Route: 048
     Dates: start: 20070104
  7. NITOROL R [Concomitant]
     Dosage: 40MG
     Dates: start: 20051208

REACTIONS (6)
  - ATRIAL FLUTTER [None]
  - CARDIAC FAILURE [None]
  - HYPERKALAEMIA [None]
  - HYPERURICAEMIA [None]
  - RENAL FAILURE CHRONIC [None]
  - URINARY TRACT INFECTION [None]
